FAERS Safety Report 6327147-7 (Version None)
Quarter: 2009Q3

REPORT INFORMATION
  Report Type: 
  Country: None (occurrence: None)
  Receive Date: 20090825
  Receipt Date: 20090818
  Transmission Date: 20100115
  Serious: Yes (Hospitalization)
  Sender: FDA-Public Use
  Company Number: A0803856A

PATIENT
  Age: 49 Year
  Sex: Male

DRUGS (2)
  1. AVANDAMET [Suspect]
     Dosage: 4MG UNKNOWN
     Route: 065
     Dates: start: 20051010, end: 20051130
  2. AVANDIA [Suspect]
     Dosage: 8MG UNKNOWN
     Route: 065
     Dates: start: 20051130, end: 20070425

REACTIONS (2)
  - CARDIAC FAILURE CONGESTIVE [None]
  - VENTRICULAR TACHYCARDIA [None]
